FAERS Safety Report 26073690 (Version 1)
Quarter: 2025Q4

REPORT INFORMATION
  Report Type: Spontaneous
  Country: US (occurrence: US)
  Receive Date: 20251121
  Receipt Date: 20251121
  Transmission Date: 20260117
  Serious: No
  Sender: BRISTOL-MYERS SQUIBB COMPANY
  Company Number: US-BRISTOL-MYERS SQUIBB COMPANY-2025-157744

PATIENT
  Age: 81 Year
  Sex: Male

DRUGS (1)
  1. LENALIDOMIDE [Suspect]
     Active Substance: LENALIDOMIDE
     Indication: Head and neck cancer
     Dosage: TAKE 1 CAPSULE (10MG TOTAL) BY MOUTH EVERY OTHER DAY FOR 21 DAYS THEN OFF 1 WEEK
     Route: 048

REACTIONS (3)
  - Illness [Recovered/Resolved]
  - Nasopharyngitis [Unknown]
  - Off label use [Unknown]
